FAERS Safety Report 6499858-4 (Version None)
Quarter: 2009Q4

REPORT INFORMATION
  Report Type: 
  Country: None (occurrence: None)
  Receive Date: 20091214
  Receipt Date: 20091214
  Transmission Date: 20100525
  Serious: Yes (Hospitalization)
  Sender: FDA-Public Use
  Company Number: None

PATIENT
  Age: 7 Year
  Sex: Male
  Weight: 25.1 kg

DRUGS (5)
  1. CYTARABINE [Suspect]
     Indication: ACUTE LYMPHOCYTIC LEUKAEMIA
     Dosage: 2760 MG Q12 HOURS IV
     Route: 042
     Dates: start: 20091123, end: 20091123
  2. CYTARABINE [Suspect]
     Indication: ACUTE LYMPHOCYTIC LEUKAEMIA
     Dosage: 2760 MG Q12 HOURS IV
     Route: 042
     Dates: start: 20091124, end: 20091124
  3. ONDANSETRON [Concomitant]
  4. RED BLOOD CELLS [Concomitant]
  5. DEXAMETHASONE [Concomitant]

REACTIONS (4)
  - CHILLS [None]
  - DISSEMINATED INTRAVASCULAR COAGULATION [None]
  - PYREXIA [None]
  - RESPIRATORY DISORDER [None]
